FAERS Safety Report 8377626-6 (Version None)
Quarter: 2012Q2

REPORT INFORMATION
  Report Type: 
  Country: None (occurrence: None)
  Receive Date: 20120522
  Receipt Date: 20120517
  Transmission Date: 20120825
  Serious: Yes (Hospitalization)
  Sender: FDA-Public Use
  Company Number: US-BAYER-2011-086392

PATIENT
  Age: 46 Year
  Sex: Female

DRUGS (4)
  1. YAZ [Suspect]
     Route: 048
     Dates: start: 20070901
  2. YASMIN [Suspect]
     Route: 048
     Dates: start: 20070901
  3. HYDROCHLOROTHIAZIDE [Concomitant]
     Dosage: 12.5 MG, PRN
     Route: 048
  4. DROSPIRENONE AND ETHINYL ESTRADIOL [Suspect]
     Route: 048

REACTIONS (4)
  - DEEP VEIN THROMBOSIS [None]
  - PAIN [None]
  - PULMONARY EMBOLISM [None]
  - INJURY [None]
